FAERS Safety Report 7720086-6 (Version None)
Quarter: 2011Q3

REPORT INFORMATION
  Report Type: 
  Country: None (occurrence: None)
  Receive Date: 20110824
  Receipt Date: 20110815
  Transmission Date: 20111222
  Serious: Yes (Hospitalization)
  Sender: FDA-Public Use
  Company Number: AUR-APL-2011-04669

PATIENT
  Age: 35 Year
  Sex: Male

DRUGS (10)
  1. BISOPROLOL FUMARATE [Concomitant]
  2. BUMETANIDE [Concomitant]
  3. OMEPRAZOLE [Concomitant]
  4. SIMVASTATIN [Concomitant]
  5. RAMIPRIL [Suspect]
     Indication: PRODUCT USED FOR UNKNOWN INDICATION
     Dosage: 10 MG (10 MG,1 IN 1 D),ORAL
     Route: 048
  6. GLIMEPIRIDE [Suspect]
     Indication: PRODUCT USED FOR UNKNOWN INDICATION
     Dosage: 4 MG (4 MG,1 IN 1 D),ORAL
     Route: 048
  7. MEBEVERINE (MEBEVERINE) [Concomitant]
  8. METFORMIN HCL [Suspect]
     Indication: PRODUCT USED FOR UNKNOWN INDICATION
     Dosage: 2 GM (1 GM,2 IN 1 D),ORAL
     Route: 048
  9. DIGOXIN [Concomitant]
  10. TRIMETHOPRIM [Concomitant]

REACTIONS (2)
  - RENAL FAILURE ACUTE [None]
  - HYPOGLYCAEMIA [None]
